FAERS Safety Report 17979561 (Version 9)
Quarter: 2020Q3

REPORT INFORMATION
  Report Type: Report from Study
  Country: CL (occurrence: CL)
  Receive Date: 20200703
  Receipt Date: 20200813
  Transmission Date: 20201103
  Serious: Yes (Life-Threatening)
  Sender: FDA-Public Use
  Company Number: CL-SA-2020SA168396

PATIENT

DRUGS (63)
  1. FILGRASTIM [Concomitant]
     Active Substance: FILGRASTIM
     Dosage: 300 UG/DL, 1X
     Route: 042
     Dates: start: 20200613, end: 20200613
  2. PHYSIOLOGICAL SALINE SOLUTION [Concomitant]
     Active Substance: SODIUM CHLORIDE
     Dosage: DOSE: 11 ML/H, QD
     Route: 042
     Dates: start: 20200615, end: 20200616
  3. SALBUTAMOL [Concomitant]
     Active Substance: ALBUTEROL
     Indication: PRE-EXISTING DISEASE
     Dosage: 2 DF (PUFF), Q4H
     Route: 055
     Dates: start: 20200612, end: 20200614
  4. SALBUTAMOL [Concomitant]
     Active Substance: ALBUTEROL
     Dosage: 2 DF (PUFFS), Q8H
     Route: 055
     Dates: start: 20200616, end: 20200616
  5. FENTANYL. [Concomitant]
     Active Substance: FENTANYL
     Dosage: 2.4 UG/KG/H, QD
     Route: 042
     Dates: start: 20200622, end: 20200623
  6. FENTANYL. [Concomitant]
     Active Substance: FENTANYL
     Dosage: 3.0 UG/KG/H, QD
     Route: 042
     Dates: start: 20200624, end: 20200625
  7. DEXAMETHASONE. [Concomitant]
     Active Substance: DEXAMETHASONE
     Dosage: 8 MG, QD
     Route: 042
     Dates: start: 20200621, end: 20200621
  8. ESMERON [Concomitant]
     Active Substance: ROCURONIUM BROMIDE
     Indication: PRE-EXISTING DISEASE
     Dosage: 5 MG, QD
     Route: 042
     Dates: start: 20200618, end: 20200618
  9. ACTRAPID [Concomitant]
     Active Substance: INSULIN HUMAN
     Dosage: 94 IU, QD
     Route: 042
     Dates: start: 20200622, end: 20200622
  10. CALCIUM GLUCONATE. [Concomitant]
     Active Substance: CALCIUM GLUCONATE
     Dosage: 1 DF (AMPULE), Q8H
     Route: 042
     Dates: start: 20200621, end: 20200621
  11. FLUXAMOL [Concomitant]
     Dosage: 2 DF (PUFFS), Q12H
     Route: 055
     Dates: start: 20200624, end: 20200703
  12. AZITHROMYCIN ANHYDROUS. [Concomitant]
     Active Substance: AZITHROMYCIN ANHYDROUS
     Indication: PRE-EXISTING DISEASE
     Dosage: 500 MG, QD
     Route: 042
     Dates: start: 20200611, end: 20200614
  13. PARACETAMOL [Concomitant]
     Active Substance: ACETAMINOPHEN
     Indication: PRE-EXISTING DISEASE
     Dosage: 1 G, 1X
     Route: 048
     Dates: start: 20200611, end: 20200611
  14. IPRATROPIUM BROMIDE. [Concomitant]
     Active Substance: IPRATROPIUM BROMIDE
     Dosage: 4 DF (PUFFS), Q6H
     Route: 055
     Dates: start: 20200623, end: 20200623
  15. LOSARTAN. [Concomitant]
     Active Substance: LOSARTAN
     Indication: HYPERTENSION
     Dosage: 50 MG, QD
     Route: 048
     Dates: start: 20200611, end: 20200614
  16. OMEPRAZOLE. [Concomitant]
     Active Substance: OMEPRAZOLE
     Indication: PROPHYLAXIS
     Dosage: 40 MG, QD
     Route: 042
     Dates: start: 20200617, end: 20200622
  17. DEXAMETHASONE. [Concomitant]
     Active Substance: DEXAMETHASONE
     Dosage: 6 MG, QD
     Route: 042
     Dates: start: 20200619, end: 20200620
  18. ESMERON [Concomitant]
     Active Substance: ROCURONIUM BROMIDE
     Dosage: 5 MG, QD
     Route: 042
     Dates: start: 20200620, end: 20200621
  19. ACTRAPID [Concomitant]
     Active Substance: INSULIN HUMAN
     Indication: TYPE 2 DIABETES MELLITUS
     Dosage: 16 IU, 1X
     Route: 058
     Dates: start: 20200619, end: 20200619
  20. ACTRAPID [Concomitant]
     Active Substance: INSULIN HUMAN
     Dosage: 144 IU, QD
     Route: 042
     Dates: start: 20200625, end: 20200625
  21. RINGERS SOLUTION [Concomitant]
     Active Substance: CALCIUM CHLORIDE\POTASSIUM CHLORIDE\SODIUM CHLORIDE
     Indication: PRE-EXISTING DISEASE
     Dosage: 500 ML, QD
     Route: 042
     Dates: start: 20200623, end: 20200623
  22. FAMOTIDINE. [Concomitant]
     Active Substance: FAMOTIDINE
     Indication: PROPHYLAXIS
     Dosage: 40 MG, QD
     Route: 048
     Dates: start: 20200611, end: 20200616
  23. PHYSIOLOGICAL SALINE SOLUTION [Concomitant]
     Active Substance: SODIUM CHLORIDE
     Indication: PRE-EXISTING DISEASE
     Dosage: DOSE: 21 ML/H, QD
     Route: 042
     Dates: start: 20200612, end: 20200614
  24. DEXAMETHASONE. [Concomitant]
     Active Substance: DEXAMETHASONE
     Dosage: 8 MG, QD
     Route: 042
     Dates: start: 20200617, end: 20200618
  25. NOREPINEPHRINE. [Concomitant]
     Active Substance: NOREPINEPHRINE
     Indication: PRE-EXISTING DISEASE
     Dosage: 0.05 UG/KG/H; QD
     Route: 042
     Dates: start: 20200617, end: 20200617
  26. NOREPINEPHRINE. [Concomitant]
     Active Substance: NOREPINEPHRINE
     Dosage: 0.03 UG/KG/H, QD
     Route: 042
     Dates: start: 20200624, end: 20200624
  27. MIDAZOLAM. [Concomitant]
     Active Substance: MIDAZOLAM
     Dosage: 0.09 MG/KG/H, QD
     Route: 042
     Dates: start: 20200625, end: 20200625
  28. ESMERON [Concomitant]
     Active Substance: ROCURONIUM BROMIDE
     Dosage: 0.4 MG, QD
     Route: 042
     Dates: start: 20200625, end: 20200625
  29. SARILUMAB [Suspect]
     Active Substance: SARILUMAB
     Indication: COVID-19
     Dosage: 400 MG, 1X
     Route: 042
     Dates: start: 20200611, end: 20200611
  30. CLEXANE [Concomitant]
     Active Substance: ENOXAPARIN SODIUM
     Indication: PROPHYLAXIS
     Dosage: 40 MG, QD
     Route: 058
     Dates: start: 20200611, end: 20200616
  31. CLEXANE [Concomitant]
     Active Substance: ENOXAPARIN SODIUM
     Dosage: 60 MG, Q12H
     Route: 058
     Dates: start: 20200621, end: 20200703
  32. PARACETAMOL [Concomitant]
     Active Substance: ACETAMINOPHEN
     Dosage: 1 G, Q8W
     Route: 048
     Dates: start: 20200612, end: 20200612
  33. ASPIRINE [Concomitant]
     Active Substance: ASPIRIN
     Indication: PROPHYLAXIS
     Dosage: 100 MG, QD
     Route: 048
     Dates: start: 20200613, end: 20200616
  34. LACTULOSE. [Concomitant]
     Active Substance: LACTULOSE
     Dosage: 30 ML, Q8H
     Route: 050
     Dates: start: 20200623, end: 20200628
  35. RINGERS SOLUTION [Concomitant]
     Active Substance: CALCIUM CHLORIDE\POTASSIUM CHLORIDE\SODIUM CHLORIDE
     Dosage: 1000 ML, QD
     Route: 042
     Dates: start: 20200626, end: 20200626
  36. PARACETAMOL [Concomitant]
     Active Substance: ACETAMINOPHEN
     Dosage: 1 G, BID
     Route: 042
     Dates: start: 20200624, end: 20200624
  37. PARACETAMOL [Concomitant]
     Active Substance: ACETAMINOPHEN
     Dosage: 1 G, 1X
     Route: 042
     Dates: start: 20200625, end: 20200626
  38. DOMPERIDONE [Concomitant]
     Active Substance: DOMPERIDONE
     Indication: PROPHYLAXIS
     Dosage: 10 MG, Q8H
     Route: 042
     Dates: start: 20200617, end: 20200703
  39. NOREPINEPHRINE. [Concomitant]
     Active Substance: NOREPINEPHRINE
     Dosage: 0.03 UG/KG/H, QD
     Route: 042
     Dates: start: 20200618, end: 20200618
  40. NOREPINEPHRINE. [Concomitant]
     Active Substance: NOREPINEPHRINE
     Dosage: 0.02 UG/KG/H, QD
     Route: 042
     Dates: start: 20200619, end: 20200619
  41. MIDAZOLAM. [Concomitant]
     Active Substance: MIDAZOLAM
     Dosage: 3 MG, 1X
     Route: 042
     Dates: start: 20200624, end: 20200624
  42. LACTULOSE. [Concomitant]
     Active Substance: LACTULOSE
     Indication: PROPHYLAXIS
     Dosage: 20 ML, Q8H
     Route: 050
     Dates: start: 20200622, end: 20200622
  43. CLEXANE [Concomitant]
     Active Substance: ENOXAPARIN SODIUM
     Dosage: 60 MG, QD
     Route: 058
     Dates: start: 20200617, end: 20200620
  44. IPRATROPIUM BROMIDE. [Concomitant]
     Active Substance: IPRATROPIUM BROMIDE
     Dosage: 4 DF (PUFFS), Q4H
     Route: 055
     Dates: start: 20200624, end: 20200624
  45. HYDROCORTISONE. [Concomitant]
     Active Substance: HYDROCORTISONE
     Dosage: 100 MG, 1X
     Route: 042
     Dates: start: 20200614, end: 20200614
  46. DEXAMETHASONE. [Concomitant]
     Active Substance: DEXAMETHASONE
     Dosage: 6 MG, QD
     Route: 042
     Dates: start: 20200622, end: 20200703
  47. MIDAZOLAM. [Concomitant]
     Active Substance: MIDAZOLAM
     Indication: PRE-EXISTING DISEASE
     Dosage: 0.06 MG/KG/H, QD
     Route: 042
     Dates: start: 20200618, end: 20200618
  48. ESMERON [Concomitant]
     Active Substance: ROCURONIUM BROMIDE
     Dosage: 0.2 MG, QD
     Route: 042
     Dates: start: 20200626, end: 20200627
  49. ACTRAPID [Concomitant]
     Active Substance: INSULIN HUMAN
     Dosage: 144 IU, QD
     Route: 042
     Dates: start: 20200623, end: 20200623
  50. METOCLOPRAMIDE. [Concomitant]
     Active Substance: METOCLOPRAMIDE
     Indication: PROPHYLAXIS
     Dosage: 10 MG, Q8H
     Route: 042
     Dates: start: 20200621, end: 20200621
  51. METOCLOPRAMIDE. [Concomitant]
     Active Substance: METOCLOPRAMIDE
     Dosage: 10 MG, Q8H
     Route: 042
     Dates: start: 20200626, end: 20200627
  52. RANITIDINE. [Concomitant]
     Active Substance: RANITIDINE
     Indication: PROPHYLAXIS
     Dosage: 50 MG, Q8H
     Route: 042
     Dates: start: 20200623, end: 20200703
  53. PARACETAMOL [Concomitant]
     Active Substance: ACETAMINOPHEN
     Dosage: 1 G, 1X
     Route: 048
     Dates: start: 20200613, end: 20200613
  54. FENTANYL. [Concomitant]
     Active Substance: FENTANYL
     Indication: PRE-EXISTING DISEASE
     Dosage: DOSE; 1.8 UG/KG/H; QD
     Route: 042
     Dates: start: 20200617, end: 20200617
  55. FENTANYL. [Concomitant]
     Active Substance: FENTANYL
     Dosage: 3.6 UG/KG/H, QD
     Route: 042
     Dates: start: 20200618, end: 20200621
  56. FENTANYL. [Concomitant]
     Active Substance: FENTANYL
     Dosage: 3.6 UG/KG/H, QD
     Route: 042
     Dates: start: 20200626, end: 20200628
  57. NOREPINEPHRINE. [Concomitant]
     Active Substance: NOREPINEPHRINE
     Dosage: 0.16 UG/KG/H, QD
     Route: 042
     Dates: start: 20200626, end: 20200626
  58. MIDAZOLAM. [Concomitant]
     Active Substance: MIDAZOLAM
     Dosage: 0.04 MG/KG/H, QD
     Route: 042
     Dates: start: 20200619, end: 20200621
  59. CEFTRIAXONE. [Concomitant]
     Active Substance: CEFTRIAXONE
     Indication: PRE-EXISTING DISEASE
     Dosage: 2 G, QD
     Route: 042
     Dates: start: 20200611, end: 20200615
  60. IPRATROPIUM BROMIDE. [Concomitant]
     Active Substance: IPRATROPIUM BROMIDE
     Indication: PRE-EXISTING DISEASE
     Dosage: 2 DF (PUFFS), Q6H
     Route: 055
     Dates: start: 20200611, end: 20200616
  61. MIDAZOLAM. [Concomitant]
     Active Substance: MIDAZOLAM
     Dosage: 0.06 MG/KG/H, QD
     Route: 042
     Dates: start: 20200626, end: 20200627
  62. NPH INSULIN [Concomitant]
     Active Substance: INSULIN BEEF
     Indication: TYPE 2 DIABETES MELLITUS
     Dosage: DOSE: 20AM?10PM IU, QD
     Route: 058
     Dates: start: 20200623, end: 20200623
  63. FLUXAMOL [Concomitant]
     Indication: PRE-EXISTING DISEASE
     Dosage: 4 DF (PUFFS), Q12H
     Route: 055
     Dates: start: 20200623, end: 20200623

REACTIONS (2)
  - Lower respiratory tract infection fungal [Recovered/Resolved]
  - Systemic bacterial infection [Not Recovered/Not Resolved]

NARRATIVE: CASE EVENT DATE: 20200625
